FAERS Safety Report 20384462 (Version 1)
Quarter: 2022Q1

REPORT INFORMATION
  Report Type: Spontaneous
  Country: US (occurrence: None)
  Receive Date: 20220127
  Receipt Date: 20220127
  Transmission Date: 20220424
  Serious: Yes (unspecified)
  Sender: FDA-Public Use
  Company Number: None

PATIENT

DRUGS (1)
  1. PURELL [Suspect]
     Active Substance: ALCOHOL

REACTIONS (3)
  - Skin irritation [None]
  - Skin burning sensation [None]
  - Skin injury [None]

NARRATIVE: CASE EVENT DATE: 20220101
